FAERS Safety Report 10029583 (Version 1)
Quarter: 2014Q1

REPORT INFORMATION
  Report Type: Spontaneous
  Country: US (occurrence: None)
  Receive Date: 20140320
  Receipt Date: 20140320
  Transmission Date: 20141002
  Serious: Yes (Life-Threatening, Hospitalization)
  Sender: FDA-Public Use
  Company Number: None

PATIENT
  Age: 72 Year
  Sex: Male
  Weight: 68 kg

DRUGS (4)
  1. PRADAXA 150 MG BOEHRINGER INGELHEIM [Suspect]
     Indication: ATRIAL FIBRILLATION
     Dosage: 1 CAPSULE BID ORAL
     Route: 048
     Dates: start: 20120301, end: 20140318
  2. SYNTHROID [Concomitant]
  3. SOTALOL [Concomitant]
  4. ASPIRIN [Concomitant]

REACTIONS (2)
  - Subdural haematoma [None]
  - Brain midline shift [None]
